FAERS Safety Report 18312378 (Version 1)
Quarter: 2020Q3

REPORT INFORMATION
  Report Type: Spontaneous
  Country: CA (occurrence: CA)
  Receive Date: 20200925
  Receipt Date: 20200925
  Transmission Date: 20201103
  Serious: Yes (Hospitalization)
  Sender: FDA-Public Use
  Company Number: CA-TEVA-2020-CA-1831057

PATIENT
  Age: 20 Year
  Sex: Male

DRUGS (2)
  1. METHOTREXATE. [Suspect]
     Active Substance: METHOTREXATE
     Route: 058
  2. PREDNISONE. [Concomitant]
     Active Substance: PREDNISONE

REACTIONS (13)
  - Vomiting [Unknown]
  - Peripheral coldness [Unknown]
  - Heart rate increased [Unknown]
  - Abdominal pain upper [Unknown]
  - Asthenia [Unknown]
  - Gait inability [Unknown]
  - Blood pressure increased [Unknown]
  - Pain [Unknown]
  - Syncope [Unknown]
  - Urinary tract infection [Unknown]
  - Dizziness [Unknown]
  - Pyrexia [Unknown]
  - Skin discolouration [Unknown]
